FAERS Safety Report 18431103 (Version 1)
Quarter: 2020Q4

REPORT INFORMATION
  Report Type: Spontaneous
  Country: US (occurrence: US)
  Receive Date: 20201027
  Receipt Date: 20201027
  Transmission Date: 20210114
  Serious: Yes (Other)
  Sender: FDA-Public Use
  Company Number: US-COVIS PHARMA B.V.-2020COV00470

PATIENT
  Sex: Male

DRUGS (1)
  1. ALVESCO [Suspect]
     Active Substance: CICLESONIDE
     Indication: ASTHMA
     Dosage: UNK, 1X/DAY

REACTIONS (5)
  - Product dose omission issue [Not Recovered/Not Resolved]
  - Dysphonia [Not Recovered/Not Resolved]
  - Wheezing [Not Recovered/Not Resolved]
  - Device delivery system issue [Not Recovered/Not Resolved]
  - Device information output issue [Not Recovered/Not Resolved]
